FAERS Safety Report 23989356 (Version 3)
Quarter: 2024Q3

REPORT INFORMATION
  Report Type: Report from Study
  Country: FR (occurrence: None)
  Receive Date: 20240619
  Receipt Date: 20240918
  Transmission Date: 20241017
  Serious: Yes (Other)
  Sender: ASTRAZENECA
  Company Number: 2023A233785

PATIENT
  Sex: Male
  Weight: 67 kg

DRUGS (2)
  1. IMFINZI [Suspect]
     Active Substance: DURVALUMAB
     Indication: Biliary cancer metastatic
     Route: 042
     Dates: start: 20231002, end: 20240123
  2. CISPLATIN/GEMCITABINE [Concomitant]
     Indication: Biliary cancer metastatic
     Route: 042
     Dates: start: 20231002, end: 20240123

REACTIONS (4)
  - Off label use [Unknown]
  - Cell death [Recovered/Resolved]
  - Hepatic cytolysis [Unknown]
  - Jaundice cholestatic [Recovered/Resolved]
